FAERS Safety Report 7183967-0 (Version None)
Quarter: 2010Q4

REPORT INFORMATION
  Report Type: 
  Country: None (occurrence: None)
  Receive Date: 20101210
  Receipt Date: 20101125
  Transmission Date: 20110411
  Serious: Yes (Other)
  Sender: FDA-Public Use
  Company Number: 023007

PATIENT

DRUGS (1)
  1. LEVETIRACETAM [Suspect]

REACTIONS (1)
  - THROMBOCYTOPENIA [None]
